FAERS Safety Report 5364099-0 (Version None)
Quarter: 2007Q2

REPORT INFORMATION
  Report Type: 
  Country: None (occurrence: None)
  Receive Date: 20070620
  Receipt Date: 20070605
  Transmission Date: 20071010
  Serious: Yes (Death)
  Sender: FDA-Public Use
  Company Number: AR-GENENTECH-243166

PATIENT
  Sex: Male

DRUGS (3)
  1. AVASTIN [Suspect]
     Indication: COLON CANCER
     Dosage: 7.6 MG, UNK
     Route: 042
     Dates: start: 20061101
  2. CAPECITABINE [Concomitant]
     Indication: COLON CANCER
  3. IRINOTECAN HCL [Concomitant]
     Indication: COLON CANCER

REACTIONS (2)
  - DEATH [None]
  - HYPERTENSION [None]
